FAERS Safety Report 13881347 (Version 1)
Quarter: 2017Q3

REPORT INFORMATION
  Report Type: Spontaneous
  Country: US (occurrence: US)
  Receive Date: 20170818
  Receipt Date: 20170818
  Transmission Date: 20171127
  Serious: Yes (Other)
  Sender: FDA-Public Use
  Company Number: US-SUNOVION-2017SUN003679

PATIENT
  Sex: Female

DRUGS (1)
  1. APTIOM [Suspect]
     Active Substance: ESLICARBAZEPINE ACETATE
     Indication: PARTIAL SEIZURES
     Route: 048

REACTIONS (8)
  - Somnolence [Unknown]
  - Partial seizures [Unknown]
  - Coordination abnormal [Unknown]
  - Dizziness [Unknown]
  - Balance disorder [Unknown]
  - Cerebral disorder [Unknown]
  - Drug ineffective [Unknown]
  - Feeling abnormal [Unknown]
